FAERS Safety Report 16368658 (Version 1)
Quarter: 2019Q2

REPORT INFORMATION
  Report Type: Report from Study
  Country: IT (occurrence: IT)
  Receive Date: 20190529
  Receipt Date: 20190529
  Transmission Date: 20190711
  Serious: Yes (Hospitalization)
  Sender: FDA-Public Use
  Company Number: IT-MYLANLABS-2019M1049908

PATIENT
  Age: 86 Year
  Sex: Female

DRUGS (7)
  1. EUTIROX [Concomitant]
     Active Substance: LEVOTHYROXINE SODIUM
  2. CARVEDILOL. [Suspect]
     Active Substance: CARVEDILOL
     Indication: PRODUCT USED FOR UNKNOWN INDICATION
     Dosage: 6.25 DOSAGE FORM, QD
     Route: 048
  3. MEPRAL                             /00661201/ [Concomitant]
     Active Substance: OMEPRAZOLE
  4. LASIX [Concomitant]
     Active Substance: FUROSEMIDE
     Dosage: 50 MILLIGRAM
  5. LUVION                             /00252501/ [Concomitant]
     Active Substance: CANRENOIC ACID
  6. ZYLORIC [Concomitant]
     Active Substance: ALLOPURINOL
  7. CORDARONE [Suspect]
     Active Substance: AMIODARONE HYDROCHLORIDE
     Indication: PRODUCT USED FOR UNKNOWN INDICATION
     Dosage: 200 MILLIGRAM, QD
     Route: 048

REACTIONS (3)
  - Bradycardia [Recovered/Resolved]
  - Loss of consciousness [Recovered/Resolved]
  - Hypotension [Recovered/Resolved]

NARRATIVE: CASE EVENT DATE: 20180422
